FAERS Safety Report 17274638 (Version 2)
Quarter: 2020Q1

REPORT INFORMATION
  Report Type: Not Available
  Country: US (occurrence: US)
  Receive Date: 20200115
  Receipt Date: 20200213
  Transmission Date: 20200409
  Serious: No
  Sender: FDA-Public Use
  Company Number: US-NEUROCRINE BIOSCIENCES INC.-2020NBI00020

PATIENT
  Age: 68 Year
  Sex: Female

DRUGS (6)
  1. SEROQUEL [Concomitant]
     Active Substance: QUETIAPINE FUMARATE
  2. DOCUSATE [Concomitant]
     Active Substance: DOCUSATE
  3. LAMICTAL [Concomitant]
     Active Substance: LAMOTRIGINE
  4. HALDOL [Concomitant]
     Active Substance: HALOPERIDOL
  5. LORAZEPAM. [Concomitant]
     Active Substance: LORAZEPAM
  6. INGREZZA [Suspect]
     Active Substance: VALBENAZINE
     Indication: TARDIVE DYSKINESIA
     Route: 048
     Dates: start: 20191016, end: 20200110

REACTIONS (4)
  - Dyspnoea [Recovered/Resolved]
  - Anxiety [Recovered/Resolved]
  - Insomnia [Recovered/Resolved]
  - Muscle spasms [Recovered/Resolved]

NARRATIVE: CASE EVENT DATE: 20191213
